FAERS Safety Report 5701443-6 (Version None)
Quarter: 2008Q2

REPORT INFORMATION
  Report Type: 
  Country: None (occurrence: None)
  Receive Date: 20080407
  Receipt Date: 20080327
  Transmission Date: 20081010
  Serious: Yes (Hospitalization)
  Sender: FDA-Public Use
  Company Number: GXKR2008GB02595

PATIENT
  Age: 13 Year
  Sex: Male
  Weight: 58 kg

DRUGS (10)
  1. FLUCONAZOLE [Suspect]
     Dosage: 2 MG,
     Dates: start: 20071218, end: 20080109
  2. VINCRISTINE [Suspect]
     Dates: start: 20071204, end: 20080102
  3. ALLOPURINOL [Concomitant]
  4. CO-TRIMOXAZOLE (CO-TRIMOXAZOLE) [Concomitant]
  5. DAUNORUBICIN HYDROCHLORIDE [Concomitant]
  6. DEXAMETHASONE TAB [Concomitant]
  7. METHOTREXATE [Concomitant]
  8. ONDANSETRON HCL [Concomitant]
  9. ACETAMINOPHEN [Concomitant]
  10. RANITIDINE [Concomitant]

REACTIONS (4)
  - DRUG INTERACTION [None]
  - LIVER FUNCTION TEST ABNORMAL [None]
  - MUSCULAR WEAKNESS [None]
  - THERAPEUTIC AGENT TOXICITY [None]
